FAERS Safety Report 6144770-3 (Version None)
Quarter: 2009Q2

REPORT INFORMATION
  Report Type: 
  Country: None (occurrence: None)
  Receive Date: 20090406
  Receipt Date: 20090324
  Transmission Date: 20091009
  Serious: Yes (Death, Hospitalization)
  Sender: FDA-Public Use
  Company Number: ES-ELI_LILLY_AND_COMPANY-ES200903006214

PATIENT
  Age: 74 Year
  Sex: Male

DRUGS (4)
  1. FORTEO [Suspect]
     Indication: OSTEOPOROSIS
     Dosage: 20 UG, UNKNOWN
     Route: 058
     Dates: start: 20080101
  2. PLUSVENT [Concomitant]
     Indication: BRONCHITIS CHRONIC
     Dosage: UNK, UNKNOWN
     Route: 055
  3. ATROVENT [Concomitant]
     Indication: BRONCHITIS CHRONIC
     Dosage: UNK, UNKNOWN
     Route: 055
  4. DACORTIN [Concomitant]
     Indication: PNEUMONIA
     Dosage: UNK, UNKNOWN
     Route: 065

REACTIONS (8)
  - ABASIA [None]
  - ANOREXIA [None]
  - ASTHENIA [None]
  - CONDITION AGGRAVATED [None]
  - DEATH [None]
  - DEMENTIA ALZHEIMER'S TYPE [None]
  - FEELING ABNORMAL [None]
  - PNEUMONIA [None]
